FAERS Safety Report 15150375 (Version 1)
Quarter: 2018Q3

REPORT INFORMATION
  Report Type: Report from Study
  Country: US (occurrence: US)
  Receive Date: 20180716
  Receipt Date: 20180716
  Transmission Date: 20181010
  Serious: Yes (Other)
  Sender: FDA-Public Use
  Company Number: US-AMGEN-USASL2018094510

PATIENT
  Age: 32 Year
  Sex: Male

DRUGS (1)
  1. ENBREL [Suspect]
     Active Substance: ETANERCEPT
     Indication: RHEUMATOID ARTHRITIS
     Dosage: 50 MG, QWK
     Route: 065
     Dates: start: 201311

REACTIONS (10)
  - Anaemia [Unknown]
  - Disturbance in attention [Unknown]
  - Mental impairment [Unknown]
  - Gastrointestinal disorder [Unknown]
  - Somnolence [Unknown]
  - Rectal prolapse [Unknown]
  - Gastrointestinal infection [Unknown]
  - Dysarthria [Unknown]
  - Nausea [Unknown]
  - White blood cell count decreased [Unknown]

NARRATIVE: CASE EVENT DATE: 2016
